FAERS Safety Report 6922398-2 (Version None)
Quarter: 2010Q3

REPORT INFORMATION
  Report Type: 
  Country: None (occurrence: None)
  Receive Date: 20100813
  Receipt Date: 20100806
  Transmission Date: 20110219
  Serious: Yes (Other)
  Sender: FDA-Public Use
  Company Number: BR-JNJFOC-20100802923

PATIENT
  Sex: Female

DRUGS (1)
  1. HALDOL [Suspect]
     Indication: PRODUCT USED FOR UNKNOWN INDICATION
     Route: 065

REACTIONS (4)
  - DENGUE FEVER [None]
  - DRUG EXPOSURE DURING PREGNANCY [None]
  - HYPERSENSITIVITY [None]
  - PREGNANCY [None]
